FAERS Safety Report 6917019-9 (Version None)
Quarter: 2010Q3

REPORT INFORMATION
  Report Type: 
  Country: None (occurrence: None)
  Receive Date: 20100810
  Receipt Date: 20100806
  Transmission Date: 20110219
  Serious: Yes (Hospitalization, Other)
  Sender: FDA-Public Use
  Company Number: A0872105A

PATIENT
  Age: 49 Year
  Sex: Male

DRUGS (5)
  1. ARIXTRA [Suspect]
     Indication: EMBOLISM ARTERIAL
     Route: 058
     Dates: start: 20100723
  2. LOVENOX [Concomitant]
     Route: 058
  3. OXYCODONE [Concomitant]
     Route: 048
  4. COUMADIN [Concomitant]
     Route: 048
  5. ACETAMINOPHEN [Concomitant]
     Route: 048

REACTIONS (1)
  - URTICARIA [None]
